FAERS Safety Report 7373637-8 (Version None)
Quarter: 2011Q1

REPORT INFORMATION
  Report Type: 
  Country: None (occurrence: None)
  Receive Date: 20110325
  Receipt Date: 20110307
  Transmission Date: 20110831
  Serious: Yes (Other)
  Sender: FDA-Public Use
  Company Number: US-BAYER-200934524NA

PATIENT
  Sex: Female
  Weight: 126.98 kg

DRUGS (10)
  1. NIASPAN [Concomitant]
     Dosage: 500 MG, QD
     Route: 048
  2. ACETYLSALICYLIC ACID SRT [Concomitant]
     Dosage: 325 MG, QD
     Route: 048
  3. ZESTRIL [Concomitant]
     Dosage: 20 MG, QD
     Route: 048
  4. GLUCOTROL XL [Concomitant]
     Dosage: 5 MG, QD
     Route: 048
  5. TOPROL-XL [Concomitant]
     Dosage: 50 MG, QD
     Route: 048
  6. CRESTOR [Concomitant]
     Dosage: 10 MG, QD
  7. POTASSIUM CHLORIDE [Concomitant]
     Dosage: 40 MEQ, QD
     Route: 048
  8. BETAPACE [Concomitant]
  9. TRASYLOL [Suspect]
     Indication: CORONARY ARTERY BYPASS
     Route: 042
     Dates: start: 20040410
  10. LOVAZA [Concomitant]
     Dosage: 1000 MG, BID
     Route: 048

REACTIONS (10)
  - FEAR [None]
  - EMOTIONAL DISTRESS [None]
  - PAIN [None]
  - RENAL INJURY [None]
  - STRESS [None]
  - UNEVALUABLE EVENT [None]
  - RENAL IMPAIRMENT [None]
  - INJURY [None]
  - RENAL FAILURE [None]
  - ANXIETY [None]
